FAERS Safety Report 8974796 (Version 2)
Quarter: 2013Q1

REPORT INFORMATION
  Report Type: Spontaneous
  Country: AU (occurrence: None)
  Receive Date: 20121211
  Receipt Date: 20130226
  Transmission Date: 20140127
  Serious: Yes (Other)
  Sender: FDA-Public Use
  Company Number: 2012-21898

PATIENT
  Age: 46 Year
  Sex: Female

DRUGS (12)
  1. PHENTERMINE [Suspect]
     Indication: OBESITY
  2. TRAMADOL HYDROCHLORIDE (UNKNOWN) (TRAMADOL HYDROCHLORIDE) [Suspect]
     Indication: ABDOMINAL PAIN
  3. INSULIN (INSULIN) [Concomitant]
  4. RAMIPRIL (RAMIPRIL) [Concomitant]
  5. ATORVASTATIN (ATORVASTATIN) [Concomitant]
  6. PROPOFOL (PROPOFOL) [Concomitant]
  7. FENTANYL (FENTANYL) [Concomitant]
  8. ROCURONIUM BROMIDE (ROCURONIUM BROMIDE) [Concomitant]
  9. ALFENTANIL (ALFENTANIL) [Concomitant]
  10. MORPHINE [Concomitant]
  11. HYDRALAZINE (HYDRLAZINE) [Concomitant]
  12. MIDAZOLAM (MIDAZOLAM) [Concomitant]

REACTIONS (3)
  - Procedural hypertension [None]
  - Procedural hypertension [None]
  - Withdrawal hypertension [None]
